FAERS Safety Report 7230452-3 (Version None)
Quarter: 2011Q1

REPORT INFORMATION
  Report Type: 
  Country: None (occurrence: None)
  Receive Date: 20110118
  Receipt Date: 20110113
  Transmission Date: 20110831
  Serious: Yes (Death)
  Sender: FDA-Public Use
  Company Number: ES-SANOFI-AVENTIS-2011SA001745

PATIENT
  Age: 59 Year
  Sex: Male
  Weight: 84 kg

DRUGS (16)
  1. DEXAMETHASONE [Concomitant]
     Route: 048
     Dates: start: 20101227, end: 20101230
  2. DOCETAXEL [Suspect]
     Indication: NON-SMALL CELL LUNG CANCER
     Route: 041
     Dates: start: 20101228, end: 20101228
  3. DEXAMETHASONE [Concomitant]
     Indication: PROPHYLAXIS OF NAUSEA AND VOMITING
     Route: 042
     Dates: start: 20101228, end: 20101228
  4. EMEND [Concomitant]
     Indication: PROPHYLAXIS OF NAUSEA AND VOMITING
     Route: 048
     Dates: start: 20101228, end: 20101228
  5. SPIRIVA [Concomitant]
     Route: 055
     Dates: start: 20100201, end: 20110105
  6. FERROUS SULFATE [Concomitant]
     Route: 048
     Dates: start: 20100101, end: 20110105
  7. EMEND [Concomitant]
     Route: 048
     Dates: start: 20101229, end: 20101230
  8. NORVASC [Concomitant]
     Indication: HYPERTENSION
     Route: 048
     Dates: start: 20090101, end: 20110105
  9. ANASMA [Concomitant]
     Route: 055
     Dates: start: 20100201, end: 20110105
  10. TORECAN [Concomitant]
     Indication: PROPHYLAXIS OF NAUSEA AND VOMITING
     Route: 048
     Dates: start: 20101228, end: 20110105
  11. OMEPRAZOLE [Concomitant]
     Indication: PROPHYLAXIS
     Route: 048
     Dates: end: 20110105
  12. DEXAMETHASONE [Concomitant]
     Indication: ALLERGY PROPHYLAXIS
     Route: 042
     Dates: start: 20101228, end: 20101228
  13. DEXAMETHASONE [Concomitant]
     Route: 048
     Dates: start: 20101227, end: 20101230
  14. MYCOSTATIN [Concomitant]
     Indication: PROPHYLAXIS
     Route: 048
     Dates: start: 20101228, end: 20110105
  15. GRANISETRON HCL [Concomitant]
     Indication: PROPHYLAXIS OF NAUSEA AND VOMITING
     Route: 048
     Dates: start: 20101228, end: 20101228
  16. CISPLATIN [Suspect]
     Indication: NON-SMALL CELL LUNG CANCER
     Route: 042
     Dates: start: 20101228, end: 20101228

REACTIONS (1)
  - SUDDEN DEATH [None]
